FAERS Safety Report 7238430-5 (Version None)
Quarter: 2011Q1

REPORT INFORMATION
  Report Type: 
  Country: None (occurrence: None)
  Receive Date: 20110119
  Receipt Date: 20110119
  Transmission Date: 20110831
  Serious: Yes (Hospitalization)
  Sender: FDA-Public Use
  Company Number: None

PATIENT
  Sex: Female
  Weight: 108.8633 kg

DRUGS (1)
  1. VICTOZA [Suspect]
     Indication: TYPE 2 DIABETES MELLITUS
     Dosage: 1 INJECTION MORNING + EVENING
     Dates: start: 20101120, end: 20101202

REACTIONS (4)
  - HYPERTENSION [None]
  - PANCREATITIS [None]
  - MALAISE [None]
  - HYPOTENSION [None]
